FAERS Safety Report 10974800 (Version 3)
Quarter: 2015Q2

REPORT INFORMATION
  Report Type: Spontaneous
  Country: BR (occurrence: BR)
  Receive Date: 20150401
  Receipt Date: 20150528
  Transmission Date: 20150821
  Serious: Yes (Hospitalization, Other)
  Sender: FDA-Public Use
  Company Number: BR-ASTRAZENECA-2015SE28979

PATIENT
  Age: 81 Year
  Sex: Male
  Weight: 67 kg

DRUGS (7)
  1. SELOZOK [Suspect]
     Active Substance: METOPROLOL SUCCINATE
     Indication: MITRAL VALVE DISEASE
     Route: 048
     Dates: start: 20150120, end: 201503
  2. SELOZOK [Suspect]
     Active Substance: METOPROLOL SUCCINATE
     Indication: ARRHYTHMIA
     Route: 048
     Dates: start: 20150120, end: 201503
  3. SELOZOK [Suspect]
     Active Substance: METOPROLOL SUCCINATE
     Indication: ARRHYTHMIA
     Route: 048
     Dates: start: 201503
  4. MAREVAN [Concomitant]
     Active Substance: WARFARIN SODIUM
     Indication: ARRHYTHMIA
     Route: 048
     Dates: start: 201503
  5. ENALAPRIL [Concomitant]
     Active Substance: ENALAPRIL
     Indication: BLOOD PRESSURE INCREASED
     Route: 048
     Dates: start: 201503
  6. DIGOXIN. [Concomitant]
     Active Substance: DIGOXIN
     Indication: ARRHYTHMIA
     Route: 048
     Dates: start: 201503
  7. SELOZOK [Suspect]
     Active Substance: METOPROLOL SUCCINATE
     Indication: MITRAL VALVE DISEASE
     Route: 048
     Dates: start: 201503

REACTIONS (5)
  - Syncope [Not Recovered/Not Resolved]
  - Blood pressure increased [Not Recovered/Not Resolved]
  - Off label use [Not Recovered/Not Resolved]
  - Arrhythmia [Recovered/Resolved]
  - Blood pressure fluctuation [Not Recovered/Not Resolved]

NARRATIVE: CASE EVENT DATE: 2015
